FAERS Safety Report 4621792-2 (Version None)
Quarter: 2005Q1

REPORT INFORMATION
  Report Type: 
  Country: None (occurrence: None)
  Receive Date: 20050328
  Receipt Date: 20050315
  Transmission Date: 20050727
  Serious: Yes (Other)
  Sender: FDA-Public Use
  Company Number: 2005046067

PATIENT

DRUGS (5)
  1. VORICONAZOLE (VORICONAZOLE) [Suspect]
     Indication: ANTIFUNGAL PROPHYLAXIS
     Dosage: (2 IN 1 D)
  2. TACROLIMUS (TACROLIMUS) [Suspect]
     Indication: GRAFT VERSUS HOST DISEASE
  3. TACROLIMUS (TACROLIMUS) [Suspect]
     Indication: PROPHYLAXIS
  4. METHOTREXATE [Concomitant]
  5. FLUOROURACIL [Concomitant]

REACTIONS (2)
  - DRUG LEVEL INCREASED [None]
  - HAEMODIALYSIS [None]
